FAERS Safety Report 7720076-3 (Version None)
Quarter: 2011Q3

REPORT INFORMATION
  Report Type: 
  Country: None (occurrence: None)
  Receive Date: 20110824
  Receipt Date: 20110811
  Transmission Date: 20111222
  Serious: Yes (Other)
  Sender: FDA-Public Use
  Company Number: AUR-APL-2011-04695

PATIENT
  Age: 58 Year
  Sex: Female

DRUGS (2)
  1. ALLOPURINOL ACID (ALENDRONIC ACID) [Concomitant]
  2. ALENDRONATE SODIUM [Suspect]
     Indication: OSTEOPOROSIS
     Dosage: (70 MG) , ORAL
     Route: 048
     Dates: start: 20080108, end: 20110724

REACTIONS (5)
  - CHEST PAIN [None]
  - ODYNOPHAGIA [None]
  - GASTROOESOPHAGEAL REFLUX DISEASE [None]
  - OESOPHAGEAL ULCER [None]
  - APHAGIA [None]
